FAERS Safety Report 4429107-X (Version None)
Quarter: 2004Q3

REPORT INFORMATION
  Report Type: 
  Country: None (occurrence: None)
  Receive Date: 20040726
  Receipt Date: 20040416
  Transmission Date: 20050211
  Serious: No
  Sender: FDA-Public Use
  Company Number: USA040258836

PATIENT
  Age: 81 Year
  Sex: Female

DRUGS (4)
  1. FORTEO [Suspect]
     Indication: DRUG INTOLERANCE
     Dates: start: 20031001, end: 20031001
  2. FORTEO [Suspect]
     Indication: GASTRIC DISORDER
     Dates: start: 20031001, end: 20031001
  3. PREDNISOLONE [Concomitant]
  4. ATENOLOL [Concomitant]

REACTIONS (2)
  - PHARYNGOLARYNGEAL PAIN [None]
  - PNEUMONIA [None]
